FAERS Safety Report 21757073 (Version 2)
Quarter: 2023Q1

REPORT INFORMATION
  Report Type: Report from Study
  Country: FR (occurrence: FR)
  Receive Date: 20221220
  Receipt Date: 20230317
  Transmission Date: 20230418
  Serious: Yes (Other)
  Sender: FDA-Public Use
  Company Number: FR-ABBVIE-4227244

PATIENT
  Age: 65 Year
  Sex: Male

DRUGS (3)
  1. IBRUTINIB [Suspect]
     Active Substance: IBRUTINIB
     Indication: Mantle cell lymphoma
     Dosage: LAST ADMINISTRATION DATE BEFORE SAE 15-11-2022
     Dates: start: 20220825
  2. VENETOCLAX [Suspect]
     Active Substance: VENETOCLAX
     Indication: Mantle cell lymphoma
     Dosage: LAST ADMINISTRATION DATE BEFORE SAE 15-11-2022
     Dates: start: 20220921
  3. RITUXIMAB [Concomitant]
     Active Substance: RITUXIMAB
     Indication: Mantle cell lymphoma
     Dosage: LAST ADMINISTRATION DATE BEFORE SAE 19-10-2022
     Dates: start: 20220824

REACTIONS (2)
  - Neutropenia [Recovered/Resolved]
  - Lymphopenia [Recovered/Resolved]

NARRATIVE: CASE EVENT DATE: 20221116
